FAERS Safety Report 4993284-2 (Version None)
Quarter: 2006Q2

REPORT INFORMATION
  Report Type: 
  Country: None (occurrence: None)
  Receive Date: 20060505
  Receipt Date: 20050929
  Transmission Date: 20061013
  Serious: No
  Sender: FDA-Public Use
  Company Number: US-BRISTOL-MYERS SQUIBB COMPANY-13126982

PATIENT
  Age: 54 Year
  Sex: Female
  Weight: 59 kg

DRUGS (7)
  1. BLENOXANE [Suspect]
     Indication: HODGKIN'S DISEASE
     Route: 042
     Dates: start: 20050725, end: 20050725
  2. DOXORUBICIN [Suspect]
     Indication: HODGKIN'S DISEASE
     Route: 042
     Dates: start: 20050725, end: 20050725
  3. VINBLASTINE SULFATE [Suspect]
     Indication: HODGKIN'S DISEASE
     Route: 042
     Dates: start: 20050725, end: 20050725
  4. DTIC-DOME [Suspect]
     Indication: HODGKIN'S DISEASE
     Route: 042
     Dates: start: 20050725, end: 20050725
  5. KYTRIL [Concomitant]
     Indication: PREMEDICATION
     Route: 048
     Dates: start: 20050725, end: 20050725
  6. DEXAMETHASONE [Concomitant]
     Indication: PREMEDICATION
     Route: 048
     Dates: start: 20050725, end: 20050725
  7. DEXAMETHASONE [Concomitant]
     Route: 042
     Dates: start: 20050725, end: 20050725

REACTIONS (1)
  - FULL BLOOD COUNT DECREASED [None]
